FAERS Safety Report 5644227-X (Version None)
Quarter: 2008Q1

REPORT INFORMATION
  Report Type: 
  Country: None (occurrence: None)
  Receive Date: 20080227
  Receipt Date: 20080227
  Transmission Date: 20080703
  Serious: Yes (Hospitalization)
  Sender: FDA-Public Use
  Company Number: None

PATIENT
  Age: 37 Year
  Sex: Male
  Weight: 61.6892 kg

DRUGS (1)
  1. CHANTIX [Suspect]
     Indication: SMOKING CESSATION THERAPY
     Dosage: NK 2 X''S DAILY PO
     Route: 048
     Dates: start: 20070911, end: 20071008

REACTIONS (4)
  - ANXIETY [None]
  - DEPRESSION [None]
  - OVERDOSE [None]
  - SLEEP DISORDER [None]
